FAERS Safety Report 9916997 (Version 1)
Quarter: 2014Q1

REPORT INFORMATION
  Report Type: Spontaneous
  Country: US (occurrence: US)
  Receive Date: 20140221
  Receipt Date: 20140221
  Transmission Date: 20141002
  Serious: Yes (Death, Life-Threatening)
  Sender: FDA-Public Use
  Company Number: US-MYLANLABS-2014S1003199

PATIENT
  Age: 25 Year
  Sex: Male

DRUGS (2)
  1. KETAMINE [Suspect]
     Indication: ENDOTRACHEAL INTUBATION
     Route: 065
  2. POLYETHYLENE GLYCOL [Concomitant]
     Dosage: GOLYTELEY
     Route: 050

REACTIONS (4)
  - Death [Fatal]
  - Cardiac arrest [Recovered/Resolved with Sequelae]
  - Bradycardia [Recovering/Resolving]
  - Hypoxic-ischaemic encephalopathy [Not Recovered/Not Resolved]
